FAERS Safety Report 17704576 (Version 3)
Quarter: 2020Q2

REPORT INFORMATION
  Report Type: Spontaneous
  Country: US (occurrence: US)
  Receive Date: 20200424
  Receipt Date: 20200520
  Transmission Date: 20200714
  Serious: No
  Sender: FDA-Public Use
  Company Number: US-KYOWAKIRIN-2020BKK006403

PATIENT

DRUGS (15)
  1. SANCUSO [Suspect]
     Active Substance: GRANISETRON
     Dosage: 1 DF, 1X/WEEK
     Route: 061
     Dates: start: 20200417, end: 20200423
  2. CALCIUM [Concomitant]
     Active Substance: CALCIUM
     Indication: PRODUCT USED FOR UNKNOWN INDICATION
     Dosage: UNK
     Route: 065
  3. SANCUSO [Suspect]
     Active Substance: GRANISETRON
     Dosage: 1 DF, 1X/WEEK
     Route: 061
     Dates: start: 2020, end: 2020
  4. DEXAMETHASONE. [Concomitant]
     Active Substance: DEXAMETHASONE
     Indication: PRODUCT USED FOR UNKNOWN INDICATION
     Dosage: 20 MG, 2X/WEEK
     Route: 065
  5. OXYCODONE [Concomitant]
     Active Substance: OXYCODONE
     Indication: PRODUCT USED FOR UNKNOWN INDICATION
     Dosage: 5 MG, TID
     Route: 065
  6. OLANZAPINE. [Concomitant]
     Active Substance: OLANZAPINE
     Indication: NAUSEA
     Dosage: UNK, QHS (AT BEDTIME)
     Route: 065
  7. COREG [Concomitant]
     Active Substance: CARVEDILOL
     Indication: PRODUCT USED FOR UNKNOWN INDICATION
     Dosage: UNK, QD
     Route: 065
  8. SANCUSO [Suspect]
     Active Substance: GRANISETRON
     Indication: PROPHYLAXIS OF NAUSEA AND VOMITING
     Dosage: 1 DF, 1X/WEEK
     Route: 061
     Dates: start: 20200429, end: 2020
  9. SANCUSO [Suspect]
     Active Substance: GRANISETRON
     Dosage: 1 DF, 1X/WEEK
     Route: 061
     Dates: start: 20200505
  10. SELINEXOR [Concomitant]
     Active Substance: SELINEXOR
     Indication: PLASMA CELL MYELOMA
     Dosage: 4 DF, 1X/WEEK
     Route: 065
     Dates: start: 20200128
  11. SANCUSO [Suspect]
     Active Substance: GRANISETRON
     Dosage: 1 DF, 1X/WEEK
     Route: 061
     Dates: start: 20200423, end: 20200429
  12. SANCUSO [Suspect]
     Active Substance: GRANISETRON
     Dosage: 1 DF, 1X/WEEK
     Route: 061
     Dates: start: 20200414, end: 20200417
  13. SANCUSO [Suspect]
     Active Substance: GRANISETRON
     Dosage: 1 DF, 1X/WEEK
     Route: 061
     Dates: start: 2020
  14. ACYCLOVIR [ACICLOVIR] [Concomitant]
     Active Substance: ACYCLOVIR
     Indication: PRODUCT USED FOR UNKNOWN INDICATION
     Dosage: UNK, QD
     Route: 065
  15. MORPHINE [Concomitant]
     Active Substance: MORPHINE
     Indication: PRODUCT USED FOR UNKNOWN INDICATION
     Dosage: 15 MG, TID
     Route: 065

REACTIONS (3)
  - Product adhesion issue [Unknown]
  - Wrong technique in product usage process [Not Recovered/Not Resolved]
  - Therapeutic product effect incomplete [Not Recovered/Not Resolved]

NARRATIVE: CASE EVENT DATE: 202004
